FAERS Safety Report 9669232 (Version 2)
Quarter: 2013Q4

REPORT INFORMATION
  Report Type: Spontaneous
  Country: DE (occurrence: None)
  Receive Date: 20131101
  Receipt Date: 20131113
  Transmission Date: 20140711
  Serious: Yes (Other)
  Sender: FDA-Public Use
  Company Number: 2013MPI00655

PATIENT
  Age: 16 Year
  Sex: Female

DRUGS (2)
  1. BRENTUXIMAB VEDOTIN [Suspect]
     Indication: HODGKIN^S DISEASE
     Dosage: QCYCLE
     Route: 042
     Dates: start: 20130305, end: 20130528
  2. BRENTUXIMAB VEDOTIN [Suspect]
     Indication: HODGKIN^S DISEASE REFRACTORY
     Dosage: QCYCLE
     Route: 042
     Dates: start: 20130305, end: 20130528

REACTIONS (1)
  - Monoplegia [None]
